FAERS Safety Report 23133819 (Version 1)
Quarter: 2023Q4

REPORT INFORMATION
  Report Type: Spontaneous
  Country: US (occurrence: None)
  Receive Date: 20231031
  Receipt Date: 20231031
  Transmission Date: 20240110
  Serious: Yes (unspecified)
  Sender: FDA-Public Use
  Company Number: None

PATIENT
  Age: 71 Year
  Sex: Female
  Weight: 72 kg

DRUGS (1)
  1. CVS HEALTH LUBRICANT DROPS [Suspect]
     Active Substance: PROPYLENE GLYCOL
     Indication: Dry eye
     Dosage: OTHER QUANTITY : 1 DROP(S);?FREQUENCY : AT BEDTIME;?OTHER ROUTE : DROPS INTO THE EYE;?
     Route: 050

REACTIONS (2)
  - Eye pruritus [None]
  - Eye pain [None]

NARRATIVE: CASE EVENT DATE: 20231022
